FAERS Safety Report 9857897 (Version 1)
Quarter: 2014Q1

REPORT INFORMATION
  Report Type: Report from Study
  Country: US (occurrence: US)
  Receive Date: 20140131
  Receipt Date: 20140131
  Transmission Date: 20141002
  Serious: Yes (Other)
  Sender: FDA-Public Use
  Company Number: US-ROCHE-1342198

PATIENT
  Sex: Male
  Weight: 42.19 kg

DRUGS (2)
  1. NUTROPIN AQ [Suspect]
     Indication: GROWTH HORMONE DEFICIENCY
     Dosage: 20 MG/2 ML.
     Route: 058
     Dates: end: 20140107
  2. NUTROPIN AQ [Suspect]
     Route: 058
     Dates: start: 20140107

REACTIONS (2)
  - Growth retardation [Unknown]
  - Rash [Unknown]
